FAERS Safety Report 7024420-4 (Version None)
Quarter: 2010Q4

REPORT INFORMATION
  Report Type: 
  Country: None (occurrence: None)
  Receive Date: 20101001
  Receipt Date: 20100923
  Transmission Date: 20110411
  Serious: Yes (Hospitalization)
  Sender: FDA-Public Use
  Company Number: SE-JNJFOC-20071108685

PATIENT
  Sex: Female

DRUGS (3)
  1. IPREN [Suspect]
     Indication: PYREXIA
     Route: 048
  2. ENALAPRIL MALEATE [Concomitant]
  3. OMEPRAZOLE [Concomitant]

REACTIONS (1)
  - DYSPNOEA [None]
